FAERS Safety Report 8764630 (Version 4)
Quarter: 2013Q4

REPORT INFORMATION
  Report Type: Spontaneous
  Country: US (occurrence: US)
  Receive Date: 20120831
  Receipt Date: 20131113
  Transmission Date: 20140711
  Serious: Yes (Death, Hospitalization)
  Sender: FDA-Public Use
  Company Number: US-B.I. PHARMACEUTICALS,INC./RIDGEFIELD-2012-BP-21278BP

PATIENT
  Sex: Female
  Weight: 45.36 kg

DRUGS (10)
  1. PRADAXA [Suspect]
     Indication: ATRIAL FIBRILLATION
     Dosage: 300 MG
     Dates: start: 20110128, end: 20110322
  2. SENNA CAP [Concomitant]
  3. PRAVACHOL [Concomitant]
     Dosage: 20 MG
  4. NEURONTIN [Concomitant]
     Dosage: 600 MG
  5. OSCAL 500 PLUS D [Concomitant]
  6. LISINOPRIL [Concomitant]
     Dosage: 5 MG
  7. LOPRESSOR TAB [Concomitant]
     Dosage: 40 MG
  8. CALCITRONIN SALMON NASAL SPRAY [Concomitant]
  9. FENTANYL [Concomitant]
  10. CENTRUM SILVER TAB [Concomitant]

REACTIONS (3)
  - Gastrointestinal haemorrhage [Fatal]
  - Epistaxis [Unknown]
  - Haematoma [Unknown]
